FAERS Safety Report 8572064-5 (Version None)
Quarter: 2012Q3

REPORT INFORMATION
  Report Type: 
  Country: None (occurrence: None)
  Receive Date: 20120806
  Receipt Date: 20120727
  Transmission Date: 20120928
  Serious: Yes (Hospitalization, Other)
  Sender: FDA-Public Use
  Company Number: US-VERTEX PHARMACEUTICALS INC.-AE-2012-011253

PATIENT
  Sex: Male

DRUGS (3)
  1. RIBAVIRIN [Concomitant]
     Indication: HEPATITIS C
     Dates: start: 20120606, end: 20120627
  2. PEGASYS [Concomitant]
     Indication: HEPATITIS C
     Dates: start: 20120606, end: 20120627
  3. INCIVEK [Suspect]
     Indication: HEPATITIS C
     Route: 048
     Dates: start: 20120606, end: 20120627

REACTIONS (5)
  - DEHYDRATION [None]
  - IRRITABILITY [None]
  - NAUSEA [None]
  - SYNCOPE [None]
  - PAIN [None]
